FAERS Safety Report 4293853-1 (Version None)
Quarter: 2004Q1

REPORT INFORMATION
  Report Type: 
  Country: None (occurrence: None)
  Receive Date: 20040212
  Receipt Date: 20040205
  Transmission Date: 20041129
  Serious: Yes (Other)
  Sender: FDA-Public Use
  Company Number: PHBS2004IT01870

PATIENT
  Age: 65 Year
  Sex: Female

DRUGS (2)
  1. LESCOL [Suspect]
     Indication: HYPERCHOLESTEROLAEMIA
     Dosage: 80 MG/DAY
     Route: 048
     Dates: start: 20031218, end: 20031230
  2. PARIET [Concomitant]

REACTIONS (2)
  - EXTRASYSTOLES [None]
  - TACHYCARDIA [None]
